FAERS Safety Report 15888234 (Version 4)
Quarter: 2019Q1

REPORT INFORMATION
  Report Type: Spontaneous
  Country: AT (occurrence: AT)
  Receive Date: 20190130
  Receipt Date: 20190222
  Transmission Date: 20190417
  Serious: Yes (Hospitalization, Other)
  Sender: FDA-Public Use
  Company Number: AT-TEVA-2019-AT-1003521

PATIENT
  Age: 23 Year
  Sex: Male

DRUGS (1)
  1. COPAXONE [Suspect]
     Active Substance: GLATIRAMER ACETATE
     Route: 065

REACTIONS (15)
  - Panic reaction [Unknown]
  - Eye pain [Not Recovered/Not Resolved]
  - Pain in extremity [Unknown]
  - Optic neuritis [Recovering/Resolving]
  - Visual impairment [Not Recovered/Not Resolved]
  - Neuralgia [Unknown]
  - Paraesthesia [Unknown]
  - Sleep disorder [Unknown]
  - Sight disability [Unknown]
  - Multiple sclerosis relapse [Not Recovered/Not Resolved]
  - Optic nerve injury [Recovering/Resolving]
  - Pain [Not Recovered/Not Resolved]
  - Fear [Unknown]
  - Micturition urgency [Unknown]
  - Nuclear magnetic resonance imaging spinal abnormal [Unknown]
